FAERS Safety Report 9150244 (Version 1)
Quarter: 2013Q1

REPORT INFORMATION
  Report Type: Spontaneous
  Country: CN (occurrence: None)
  Receive Date: 20130129
  Receipt Date: 20130129
  Transmission Date: 20140127
  Serious: Yes (Other)
  Sender: FDA-Public Use
  Company Number: VAL_01306_2013

PATIENT
  Sex: Female
  Weight: 45 kg

DRUGS (1)
  1. LOTENSIN [Suspect]
     Indication: HYPERTENSION
     Route: 048
     Dates: start: 20110702, end: 20110703

REACTIONS (3)
  - Periportal oedema [None]
  - Oedema peripheral [None]
  - Oedema peripheral [None]
